FAERS Safety Report 9375665 (Version 1)
Quarter: 2013Q2

REPORT INFORMATION
  Report Type: Spontaneous
  Country: US (occurrence: US)
  Receive Date: 20130628
  Receipt Date: 20130628
  Transmission Date: 20140414
  Serious: No
  Sender: FDA-Public Use
  Company Number: US-009507513-1306USA009691

PATIENT
  Sex: Female

DRUGS (1)
  1. MK-8415 [Suspect]
     Indication: CONTRACEPTION
     Dosage: 1 DF, UNK
     Route: 059

REACTIONS (1)
  - Adverse event [Not Recovered/Not Resolved]
